FAERS Safety Report 18668257 (Version 1)
Quarter: 2020Q4

REPORT INFORMATION
  Report Type: Spontaneous
  Country: GB (occurrence: GB)
  Receive Date: 20201228
  Receipt Date: 20201228
  Transmission Date: 20210114
  Serious: No
  Sender: FDA-Public Use
  Company Number: GB-LUPIN PHARMACEUTICALS INC.-2020-02785

PATIENT
  Age: 54 Year
  Sex: Female

DRUGS (2)
  1. PATENT BLUE V [SULPHAN BLUE] [Suspect]
     Active Substance: SULFAN BLUE
     Indication: BREAST CANCER
     Dosage: UNK
     Route: 065
  2. MORPHINE [Suspect]
     Active Substance: MORPHINE
     Indication: ANALGESIC THERAPY
     Dosage: 5 MILLIGRAM
     Route: 042

REACTIONS (1)
  - Urticaria [Unknown]
